FAERS Safety Report 4404123-2 (Version None)
Quarter: 2004Q3

REPORT INFORMATION
  Report Type: 
  Country: None (occurrence: None)
  Receive Date: 20040721
  Receipt Date: 20040721
  Transmission Date: 20050211
  Serious: Yes (Life-Threatening, Hospitalization, Disabling)
  Sender: FDA-Public Use
  Company Number: None

PATIENT
  Age: 46 Year
  Sex: Male
  Weight: 82.5547 kg

DRUGS (2)
  1. PEG-INTRON [Suspect]
     Indication: HEPATITIS C
     Dosage: 0.5ML WEEKLY INTRAMUSCULAR
     Route: 030
     Dates: start: 20010819, end: 20021020
  2. RIBAVIRIN [Suspect]
     Dosage: 3 CAPSULE 2X DAILY ORAL
     Route: 048

REACTIONS (4)
  - AMNESIA [None]
  - COGNITIVE DISORDER [None]
  - MENTAL DISORDER [None]
  - PSYCHOTIC DISORDER [None]
